FAERS Safety Report 5615127-6 (Version None)
Quarter: 2008Q1

REPORT INFORMATION
  Report Type: 
  Country: None (occurrence: None)
  Receive Date: 20080206
  Receipt Date: 20070712
  Transmission Date: 20080703
  Serious: No
  Sender: FDA-Public Use
  Company Number: A0658237A

PATIENT
  Age: 81 Year
  Sex: Male
  Weight: 86.4 kg

DRUGS (1)
  1. ARIXTRA [Suspect]
     Dosage: 7.5MG PER DAY
     Route: 058
     Dates: start: 20070425, end: 20070621

REACTIONS (5)
  - CHROMATURIA [None]
  - FEELING ABNORMAL [None]
  - FLAT AFFECT [None]
  - IMPAIRED HEALING [None]
  - LISTLESS [None]
